FAERS Safety Report 23112933 (Version 3)
Quarter: 2024Q1

REPORT INFORMATION
  Report Type: Spontaneous
  Country: BR (occurrence: BR)
  Receive Date: 20231027
  Receipt Date: 20240222
  Transmission Date: 20240410
  Serious: Yes (Hospitalization)
  Sender: FDA-Public Use
  Company Number: BR-NOVOPROD-1128757

PATIENT
  Age: 1112 Month
  Sex: Female

DRUGS (1)
  1. NOVORAPID [Suspect]
     Active Substance: INSULIN ASPART
     Indication: Diabetes mellitus
     Dosage: UNK

REACTIONS (3)
  - Blood sodium decreased [Recovered/Resolved]
  - Asthenia [Recovered/Resolved]
  - Device leakage [Unknown]
